FAERS Safety Report 4679235-9 (Version None)
Quarter: 2005Q2

REPORT INFORMATION
  Report Type: 
  Country: None (occurrence: None)
  Receive Date: 20050311
  Receipt Date: 20050311
  Transmission Date: 20051028
  Serious: Yes (Life-Threatening)
  Sender: FDA-Public Use
  Company Number: None

PATIENT
  Sex: Female

DRUGS (1)
  1. WARFARIN [Suspect]
     Indication: PULMONARY EMBOLISM
     Dosage: 2MG TABS , AS DIRECTED PO
     Route: 048
     Dates: start: 20040923

REACTIONS (1)
  - INTERNATIONAL NORMALISED RATIO FLUCTUATION [None]
